FAERS Safety Report 8330283-7 (Version None)
Quarter: 2012Q2

REPORT INFORMATION
  Report Type: 
  Country: None (occurrence: None)
  Receive Date: 20120502
  Receipt Date: 20120427
  Transmission Date: 20120825
  Serious: Yes (Hospitalization)
  Sender: FDA-Public Use
  Company Number: PHHY2011DE106334

PATIENT
  Sex: Female
  Weight: 100 kg

DRUGS (4)
  1. FEMARA [Suspect]
     Dosage: 2.5 MG, UNK
     Dates: start: 20110512
  2. NOVALGIN [Concomitant]
     Dosage: UNK UKN, UNK
     Dates: start: 20110512
  3. ZOMETA [Suspect]
     Indication: BONE DISORDER
     Dosage: UNK UKN, UNK
     Route: 042
     Dates: start: 20110527
  4. TRAMADOL HYDROCHLORIDE [Concomitant]
     Dosage: UNK UKN, UNK
     Dates: start: 20110512, end: 20110527

REACTIONS (1)
  - SUICIDE ATTEMPT [None]
